FAERS Safety Report 24023265 (Version 2)
Quarter: 2024Q2

REPORT INFORMATION
  Report Type: Report from Study
  Country: CN (occurrence: CN)
  Receive Date: 20240627
  Receipt Date: 20240628
  Transmission Date: 20240716
  Serious: No
  Sender: FDA-Public Use
  Company Number: CN-ROCHE-3327928

PATIENT
  Age: 49 Year
  Sex: Female
  Weight: 80.0 kg

DRUGS (1)
  1. ALECENSA [Suspect]
     Active Substance: ALECTINIB HYDROCHLORIDE
     Indication: Lung neoplasm malignant
     Route: 048
     Dates: start: 20230317

REACTIONS (4)
  - Hepatic function abnormal [Recovering/Resolving]
  - Hepatic pain [Recovering/Resolving]
  - Oedema [Recovering/Resolving]
  - Hepatic function abnormal [Unknown]
